FAERS Safety Report 8772808 (Version 1)
Quarter: 2012Q4

REPORT INFORMATION
  Report Type: 
  Country: PL (occurrence: PL)
  Receive Date: 20120907
  Receipt Date: 20120907
  Transmission Date: 20130627
  Serious: Yes (Hospitalization)
  Sender: FDA-Public Use
  Company Number: PHHY2009PL071249

PATIENT
  Age: 43 Year
  Sex: Male

DRUGS (13)
  1. MYFORTIC [Suspect]
     Indication: IMMUNOSUPPRESSION
     Dosage: 180 mg, BID
  2. STEROIDS NOS [Concomitant]
     Indication: RENAL TRANSPLANT
     Dosage: UNK UKN, UNK
  3. STEROIDS NOS [Concomitant]
     Dosage: 30 mg, daily
  4. ADVAGRAF [Concomitant]
     Indication: RENAL TRANSPLANT
  5. ADVAGRAF [Concomitant]
     Dosage: 5 mg,
  6. ADVAGRAF [Concomitant]
     Dosage: UNK UKN, BID
  7. ADVAGRAF [Concomitant]
     Dosage: 1.5 mg, BID
  8. PREDNISONE [Concomitant]
     Indication: RENAL TRANSPLANT
     Dosage: 7.5 mg, daily
  9. PREDNISONE [Concomitant]
     Dosage: 5 mg, daily
  10. MESALAZINE [Concomitant]
     Indication: RENAL TRANSPLANT
     Dosage: 500 mg, TID
  11. RANITIDINE [Concomitant]
     Dosage: 150 mg, daily
  12. ALLOPURINOL [Concomitant]
     Dosage: 100 mg, daily
  13. VERAPAMIL [Concomitant]
     Dosage: 120 mg, daily

REACTIONS (10)
  - Large intestinal ulcer [Recovering/Resolving]
  - Weight decreased [Unknown]
  - Anaemia [Recovering/Resolving]
  - Diarrhoea haemorrhagic [Recovering/Resolving]
  - Abdominal pain [Recovering/Resolving]
  - Dehydration [Recovering/Resolving]
  - Oedema mucosal [Recovering/Resolving]
  - Mucosal ulceration [Recovering/Resolving]
  - Thrombosis [Recovering/Resolving]
  - Renal impairment [Recovering/Resolving]
